FAERS Safety Report 10042244 (Version 3)
Quarter: 2014Q3

REPORT INFORMATION
  Report Type: Report from Study
  Country: JP (occurrence: JP)
  Receive Date: 20140327
  Receipt Date: 20140716
  Transmission Date: 20150326
  Serious: Yes (Other)
  Sender: FDA-Public Use
  Company Number: JP-GLAXOSMITHKLINE-B0980064A

PATIENT
  Age: 58 Year
  Sex: Male
  Weight: 67 kg

DRUGS (12)
  1. MYSLEE [Concomitant]
     Active Substance: ZOLPIDEM TARTRATE
     Route: 048
  2. ALEVIATIN [Concomitant]
     Active Substance: PHENYTOIN SODIUM
     Indication: PARTIAL SEIZURES
     Route: 048
     Dates: end: 20110415
  3. LAMICTAL [Suspect]
     Active Substance: LAMOTRIGINE
     Indication: PARTIAL SEIZURES
     Dosage: 75MG TWICE PER DAY
     Route: 048
     Dates: start: 20110805, end: 20120502
  4. EURODIN [Concomitant]
     Active Substance: ESTAZOLAM
     Route: 048
  5. DEPAS [Concomitant]
     Active Substance: ETIZOLAM
     Route: 048
  6. DEPAKENE [Concomitant]
     Active Substance: VALPROIC ACID
     Indication: PARTIAL SEIZURES
     Route: 048
  7. LAMICTAL [Suspect]
     Active Substance: LAMOTRIGINE
     Indication: PARTIAL SEIZURES
     Dosage: 25MG PER DAY
     Route: 048
     Dates: start: 20110429, end: 20110512
  8. LAMICTAL [Suspect]
     Active Substance: LAMOTRIGINE
     Indication: PARTIAL SEIZURES
     Dosage: 50MG TWICE PER DAY
     Route: 048
     Dates: start: 20110527, end: 20110804
  9. LIPITOR [Concomitant]
     Active Substance: ATORVASTATIN CALCIUM
     Route: 048
  10. TEGRETOL [Concomitant]
     Active Substance: CARBAMAZEPINE
     Indication: PARTIAL SEIZURES
     Route: 048
  11. LAMICTAL [Suspect]
     Active Substance: LAMOTRIGINE
     Indication: PARTIAL SEIZURES
     Dosage: 25MG TWICE PER DAY
     Route: 048
     Dates: start: 20110513, end: 20110526
  12. LAMICTAL [Suspect]
     Active Substance: LAMOTRIGINE
     Indication: PARTIAL SEIZURES
     Dosage: 25MG PER DAY
     Route: 048
     Dates: start: 20110415, end: 20110428

REACTIONS (1)
  - Diabetes mellitus [Recovering/Resolving]

NARRATIVE: CASE EVENT DATE: 20111021
